FAERS Safety Report 5405422-8 (Version None)
Quarter: 2007Q3

REPORT INFORMATION
  Report Type: 
  Country: None (occurrence: None)
  Receive Date: 20070803
  Receipt Date: 20070725
  Transmission Date: 20080115
  Serious: Yes (Hospitalization)
  Sender: FDA-Public Use
  Company Number: CA-PFIZER INC-2006145999

PATIENT
  Sex: Female
  Weight: 57.9 kg

DRUGS (7)
  1. SU-011,248 [Suspect]
     Indication: GASTROINTESTINAL STROMAL TUMOUR
     Route: 048
     Dates: start: 20061026, end: 20061122
  2. DIOVAN [Concomitant]
     Route: 048
  3. LASIX [Concomitant]
     Route: 048
     Dates: start: 19950101
  4. PANTOPRAZOLE SODIUM [Concomitant]
     Route: 048
     Dates: start: 20060201
  5. ALDACTONE [Concomitant]
     Route: 048
     Dates: start: 20061128
  6. K-DUR 10 [Concomitant]
     Route: 048
     Dates: start: 20061204
  7. EPREX [Concomitant]
     Route: 058
     Dates: start: 20060531

REACTIONS (5)
  - BLOOD UREA INCREASED [None]
  - CARDIAC FAILURE [None]
  - HYPOTHYROIDISM [None]
  - PANCYTOPENIA [None]
  - RHABDOMYOLYSIS [None]
